FAERS Safety Report 25884362 (Version 1)
Quarter: 2025Q4

REPORT INFORMATION
  Report Type: Spontaneous
  Country: US (occurrence: None)
  Receive Date: 20251003
  Receipt Date: 20251003
  Transmission Date: 20260118
  Serious: Yes (Life-Threatening, Hospitalization, Disabling)
  Sender: FDA-CTU
  Company Number: None

PATIENT
  Sex: Male
  Weight: 112.5 kg

DRUGS (4)
  1. RITALIN [Suspect]
     Active Substance: METHYLPHENIDATE HYDROCHLORIDE
  2. PROZAC [Suspect]
     Active Substance: FLUOXETINE HYDROCHLORIDE
  3. ZOLOFT [Suspect]
     Active Substance: SERTRALINE HYDROCHLORIDE
  4. VITAMINS [Concomitant]
     Active Substance: VITAMINS

REACTIONS (11)
  - Victim of crime [None]
  - Victim of abuse [None]
  - Gynaecomastia [None]
  - Akathisia [None]
  - Tardive dyskinesia [None]
  - Brain injury [None]
  - Tooth injury [None]
  - Gingival disorder [None]
  - Rectal prolapse [None]
  - Constipation [None]
  - Withdrawal syndrome [None]
